FAERS Safety Report 20701641 (Version 1)
Quarter: 2022Q2

REPORT INFORMATION
  Report Type: Report from Study
  Country: NL (occurrence: NL)
  Receive Date: 20220412
  Receipt Date: 20220412
  Transmission Date: 20220721
  Serious: Yes (Other)
  Sender: FDA-Public Use
  Company Number: NL-BRISTOL-MYERS SQUIBB COMPANY-2022-018162

PATIENT

DRUGS (9)
  1. LENALIDOMIDE [Suspect]
     Active Substance: LENALIDOMIDE
     Indication: Product used for unknown indication
     Route: 048
     Dates: start: 20190909, end: 20190929
  2. LENALIDOMIDE [Suspect]
     Active Substance: LENALIDOMIDE
     Dosage: DOSE NOT ADMINISTERED (REST PERIOD)
     Route: 065
     Dates: start: 20190930, end: 20191008
  3. LENALIDOMIDE [Suspect]
     Active Substance: LENALIDOMIDE
     Route: 048
     Dates: start: 20191009, end: 20191029
  4. LENALIDOMIDE [Suspect]
     Active Substance: LENALIDOMIDE
     Dosage: DOSE NOT ADMINISTERED (REST PERIOD)
     Route: 065
     Dates: start: 20191030, end: 20191107
  5. LENALIDOMIDE [Suspect]
     Active Substance: LENALIDOMIDE
     Dosage: DOSE NOT ADMINISTERED DUE TO MEDICAL DECISION
     Route: 065
     Dates: start: 20190819, end: 20190908
  6. DEXAMETHASONE [Suspect]
     Active Substance: DEXAMETHASONE
     Indication: Product used for unknown indication
     Dosage: DOSE NOT ADMINISTERED DUE TO ADVERSE EVENT
     Route: 065
     Dates: start: 20190826, end: 20190908
  7. DEXAMETHASONE [Suspect]
     Active Substance: DEXAMETHASONE
     Route: 048
     Dates: start: 20190909, end: 20191008
  8. DEXAMETHASONE [Suspect]
     Active Substance: DEXAMETHASONE
     Dosage: DOSE NOT ADMINISTERED
     Route: 048
     Dates: start: 20191009, end: 20191107
  9. VELCADE [Suspect]
     Active Substance: BORTEZOMIB
     Indication: Product used for unknown indication
     Dosage: DOSE UNIT= MG/M2 ?DOSE NOT ADMINISTERED DUE TO ADVERSE EVENT
     Route: 065
     Dates: start: 20190826, end: 20190826

REACTIONS (1)
  - Corneal perforation [Unknown]

NARRATIVE: CASE EVENT DATE: 20190829
